FAERS Safety Report 6120642-5 (Version None)
Quarter: 2009Q1

REPORT INFORMATION
  Report Type: 
  Country: None (occurrence: None)
  Receive Date: 20090317
  Receipt Date: 20090310
  Transmission Date: 20090719
  Serious: Yes (Other)
  Sender: FDA-Public Use
  Company Number: BR-BAYER-200812628LA

PATIENT
  Age: 39 Year
  Sex: Female
  Weight: 69 kg

DRUGS (3)
  1. ANGELIQ [Suspect]
     Indication: HORMONE REPLACEMENT THERAPY
     Route: 048
     Dates: start: 20070901
  2. OLCADIL [Concomitant]
     Indication: ANXIETY
     Route: 065
     Dates: start: 20060101
  3. HIPERICIN [Concomitant]
     Indication: DRUG USE FOR UNKNOWN INDICATION
     Route: 065

REACTIONS (1)
  - HEPATIC STEATOSIS [None]
